FAERS Safety Report 19314568 (Version 1)
Quarter: 2021Q2

REPORT INFORMATION
  Report Type: Spontaneous
  Country: DE (occurrence: DE)
  Receive Date: 20210527
  Receipt Date: 20210527
  Transmission Date: 20210717
  Serious: Yes (Other)
  Sender: FDA-Public Use
  Company Number: DE-MYLANLABS-2021M1030625

PATIENT
  Age: 46 Year
  Sex: Male

DRUGS (4)
  1. METFORMIN [Suspect]
     Active Substance: METFORMIN HYDROCHLORIDE
     Indication: PANCREATOGENOUS DIABETES
     Dosage: UNK
     Route: 065
  2. PREDNISOLONE. [Suspect]
     Active Substance: PREDNISOLONE
     Dosage: 15 MILLIGRAM, QD,DOSE AT THE TIME OF DISCONTINUATION
     Route: 065
     Dates: end: 2015
  3. PREDNISOLONE. [Suspect]
     Active Substance: PREDNISOLONE
     Indication: INFLAMMATORY BOWEL DISEASE
     Dosage: 50 MILLIGRAM, QD, WITH SLOW TAPERING
     Route: 065
     Dates: start: 20150807
  4. METFORMIN [Suspect]
     Active Substance: METFORMIN HYDROCHLORIDE
     Indication: STEROID DIABETES
     Dosage: 500 MILLIGRAM, BID
     Route: 065
     Dates: start: 20151010

REACTIONS (2)
  - Contraindicated product administered [Unknown]
  - Steroid diabetes [Recovering/Resolving]

NARRATIVE: CASE EVENT DATE: 2015
